FAERS Safety Report 24821324 (Version 4)
Quarter: 2025Q1

REPORT INFORMATION
  Report Type: Report from Study
  Country: CO (occurrence: CO)
  Receive Date: 20250108
  Receipt Date: 20250311
  Transmission Date: 20250409
  Serious: Yes (Hospitalization, Other)
  Sender: ASTELLAS
  Company Number: CO-ASTELLAS-2025-AER-000813

PATIENT
  Age: 49 Year
  Sex: Male
  Weight: 70 kg

DRUGS (3)
  1. TACROLIMUS [Suspect]
     Active Substance: TACROLIMUS
     Indication: Liver transplant
     Route: 048
     Dates: start: 20200901
  2. TACROLIMUS [Suspect]
     Active Substance: TACROLIMUS
     Route: 048
     Dates: start: 202412
  3. TACROLIMUS [Suspect]
     Active Substance: TACROLIMUS
     Indication: Liver transplant
     Dosage: PROGRAF XL 0.5MG (ONE CAPSULE) EVERY 24 HOURS
     Route: 048
     Dates: start: 20241003, end: 20241208

REACTIONS (5)
  - Hepatic failure [Not Recovered/Not Resolved]
  - Liver transplant rejection [Not Recovered/Not Resolved]
  - Incorrect dose administered [Recovered/Resolved]
  - Immunosuppressant drug level decreased [Unknown]
  - Product dispensing error [Recovered/Resolved]

NARRATIVE: CASE EVENT DATE: 20240101
